FAERS Safety Report 7034310-9 (Version None)
Quarter: 2010Q4

REPORT INFORMATION
  Report Type: 
  Country: None (occurrence: None)
  Receive Date: 20101008
  Receipt Date: 20100927
  Transmission Date: 20110411
  Serious: Yes (Other)
  Sender: FDA-Public Use
  Company Number: AU-ELI_LILLY_AND_COMPANY-AU201005005478

PATIENT
  Sex: Male
  Weight: 110 kg

DRUGS (5)
  1. STRATTERA [Suspect]
     Indication: ATTENTION DEFICIT/HYPERACTIVITY DISORDER
     Dosage: 88 MG, UNKNOWN
     Route: 065
     Dates: start: 20100322
  2. STRATTERA [Suspect]
     Dosage: 25 MG, DAILY (1/D)
  3. STRATTERA [Suspect]
     Dosage: 80 MG, DAILY (1/D)
     Dates: start: 20100511
  4. STRATTERA [Suspect]
     Dosage: 1 D/F, UNK
     Dates: end: 20100525
  5. CLONAZEPAM [Concomitant]
     Indication: ANXIETY

REACTIONS (4)
  - EJACULATION DISORDER [None]
  - HEPATITIS [None]
  - LOSS OF LIBIDO [None]
  - TRANSAMINASES INCREASED [None]
